FAERS Safety Report 14962920 (Version 5)
Quarter: 2018Q3

REPORT INFORMATION
  Report Type: Spontaneous
  Country: US (occurrence: US)
  Receive Date: 20180601
  Receipt Date: 20180706
  Transmission Date: 20181010
  Serious: Yes (Death)
  Sender: FDA-Public Use
  Company Number: US-LUNDBECK-DKLU2049630

PATIENT
  Age: 76 Year
  Sex: Male

DRUGS (5)
  1. NORTHERA [Suspect]
     Active Substance: DROXIDOPA
     Route: 048
     Dates: start: 201805, end: 201805
  2. NORTHERA [Suspect]
     Active Substance: DROXIDOPA
     Dosage: CUSTOMIZED TITRATION SCHEDULE A; MAINTENANCE DOSE
     Route: 048
     Dates: start: 20180512, end: 20180525
  3. NORTHERA [Suspect]
     Active Substance: DROXIDOPA
     Indication: AUTONOMIC NEUROPATHY
     Route: 048
     Dates: start: 20180511, end: 20180529
  4. NORTHERA [Suspect]
     Active Substance: DROXIDOPA
     Indication: ORTHOSTATIC HYPOTENSION
     Dosage: CUSTOMIZED TITRATION SCHEDULE A; MAINTENANCE DOSE
     Route: 048
     Dates: start: 20180512, end: 20180525
  5. NORTHERA [Suspect]
     Active Substance: DROXIDOPA
     Dosage: CUSTOMIZED TITRATION SCHEDULE A
     Route: 048
     Dates: start: 201805, end: 201805

REACTIONS (1)
  - Death [Fatal]

NARRATIVE: CASE EVENT DATE: 20180529
